FAERS Safety Report 9551670 (Version 1)
Quarter: 2013Q3

REPORT INFORMATION
  Report Type: Spontaneous
  Country: US (occurrence: None)
  Receive Date: 20130724
  Receipt Date: 20130724
  Transmission Date: 20140515
  Serious: Yes (Hospitalization)
  Sender: FDA-Public Use
  Company Number: PHEH2012US022614

PATIENT
  Age: 89 Year
  Sex: Female

DRUGS (2)
  1. DIOVAN HCT (VALSARTAN, HYDROCHLOROTHIAZIDE) UNKNOWN [Suspect]
     Indication: HYPERTENSION
     Dosage: 1 DF (80/12.5 MG), DAILY, ORAL
  2. LOSARTAN HCT [Suspect]

REACTIONS (9)
  - Vertigo [None]
  - Feeling abnormal [None]
  - Limb discomfort [None]
  - Varicose vein ruptured [None]
  - Micturition urgency [None]
  - Confusional state [None]
  - Sleep disorder [None]
  - Balance disorder [None]
  - Dizziness [None]
